FAERS Safety Report 4782953-5 (Version None)
Quarter: 2005Q3

REPORT INFORMATION
  Report Type: 
  Country: None (occurrence: None)
  Receive Date: 20050914
  Receipt Date: 20050524
  Transmission Date: 20060218
  Serious: Yes (Death, Hospitalization, Other)
  Sender: FDA-Public Use
  Company Number: 163-20785-05050356

PATIENT
  Age: 89 Year
  Sex: Female

DRUGS (7)
  1. THALOMID [Suspect]
     Indication: MULTIPLE MYELOMA
     Dosage: 100 MG, QHS, ORAL
     Route: 048
     Dates: start: 20050516, end: 20050523
  2. INDAPAMIDE [Concomitant]
  3. KCL (POTASSIUM CHLORIDE) [Concomitant]
  4. HYDROCODONE W/ACETAMINOPHEN (VICODIN) [Concomitant]
  5. PREVACID [Concomitant]
  6. CELEBREX [Concomitant]
  7. ARANESP [Concomitant]

REACTIONS (7)
  - ASTHENIA [None]
  - BEDRIDDEN [None]
  - DEATH [None]
  - DISEASE PROGRESSION [None]
  - FATIGUE [None]
  - HYPERCALCAEMIA [None]
  - RED BLOOD CELL COUNT DECREASED [None]
